FAERS Safety Report 5580685-7 (Version None)
Quarter: 2008Q1

REPORT INFORMATION
  Report Type: 
  Country: None (occurrence: None)
  Receive Date: 20080103
  Receipt Date: 20071221
  Transmission Date: 20080703
  Serious: Yes (Other)
  Sender: FDA-Public Use
  Company Number: US-PFIZER INC-2007107669

PATIENT
  Sex: Female

DRUGS (1)
  1. NARDIL [Suspect]

REACTIONS (10)
  - BURNING SENSATION [None]
  - DRUG INEFFECTIVE [None]
  - HYPOAESTHESIA [None]
  - INCREASED APPETITE [None]
  - NEOPLASM MALIGNANT [None]
  - OEDEMA [None]
  - PAIN [None]
  - PARAESTHESIA [None]
  - WEIGHT DECREASED [None]
  - WEIGHT INCREASED [None]
